FAERS Safety Report 5341883-0 (Version None)
Quarter: 2007Q2

REPORT INFORMATION
  Report Type: 
  Country: None (occurrence: None)
  Receive Date: 20070601
  Receipt Date: 20070521
  Transmission Date: 20071010
  Serious: Yes (Hospitalization)
  Sender: FDA-Public Use
  Company Number: US-ELI_LILLY_AND_COMPANY-US200702003240

PATIENT
  Age: 71 Year
  Sex: Female
  Weight: 57.596 kg

DRUGS (4)
  1. EVISTA [Suspect]
     Dates: start: 20020101
  2. FORTEO [Suspect]
     Indication: COMPRESSION FRACTURE
     Dosage: UNK, UNK
     Dates: start: 20061108
  3. FORTEO [Suspect]
  4. FORTEO [Suspect]

REACTIONS (6)
  - ANXIETY [None]
  - BACK PAIN [None]
  - CHRONIC OBSTRUCTIVE PULMONARY DISEASE [None]
  - COMPRESSION FRACTURE [None]
  - INTERVERTEBRAL DISC PROTRUSION [None]
  - OPEN FRACTURE [None]
